FAERS Safety Report 20112680 (Version 1)
Quarter: 2021Q4

REPORT INFORMATION
  Report Type: Spontaneous
  Country: HR (occurrence: HR)
  Receive Date: 20211125
  Receipt Date: 20211125
  Transmission Date: 20220303
  Serious: Yes (Other)
  Sender: FDA-Public Use
  Company Number: None

PATIENT
  Sex: Female

DRUGS (8)
  1. XANAX XR [Suspect]
     Active Substance: ALPRAZOLAM
     Dosage: 30 MG, 1X/DAY
     Route: 048
     Dates: start: 20210621, end: 20210621
  2. NORMABEL [Suspect]
     Active Substance: DIAZEPAM
     Dosage: 150 MG, 1X/DAY
     Route: 048
     Dates: start: 20210621, end: 20210621
  3. CYMBALTA [Suspect]
     Active Substance: DULOXETINE HYDROCHLORIDE
     Dosage: 900 MG, 1X/DAY
     Route: 048
     Dates: start: 20210621, end: 20210621
  4. OLANZAPINE [Suspect]
     Active Substance: OLANZAPINE
     Dosage: 150 MG, 1X/DAY
     Route: 048
     Dates: start: 20210621, end: 20210621
  5. VALPROATE SODIUM [Suspect]
     Active Substance: VALPROATE SODIUM
     Dosage: 30 G, 1X/DAY
     Route: 048
     Dates: start: 20210621, end: 20210621
  6. VENLAFAXINE HYDROCHLORIDE [Suspect]
     Active Substance: VENLAFAXINE HYDROCHLORIDE
     Dosage: 5625 MG, 1X/DAY
     Route: 048
     Dates: start: 20210621, end: 20210621
  7. MIRTAZAPINE [Suspect]
     Active Substance: MIRTAZAPINE
     Dosage: 1350 MG, 1X/DAY
     Route: 048
     Dates: start: 20210621, end: 20210621
  8. LAMOTRIGINE [Suspect]
     Active Substance: LAMOTRIGINE
     Dosage: 750 MG, 1X/DAY
     Route: 048
     Dates: start: 20210621, end: 20210621

REACTIONS (8)
  - Intentional overdose [Unknown]
  - Hypotension [Unknown]
  - Somnolence [Unknown]
  - Loss of consciousness [Recovered/Resolved]
  - Inflammation [Unknown]
  - Respiratory failure [Unknown]
  - Suicide attempt [Unknown]
  - Acidosis [Unknown]

NARRATIVE: CASE EVENT DATE: 20210621
